FAERS Safety Report 4438842-9 (Version None)
Quarter: 2004Q3

REPORT INFORMATION
  Report Type: 
  Country: None (occurrence: None)
  Receive Date: 20040901
  Receipt Date: 20040818
  Transmission Date: 20050211
  Serious: Yes (Other)
  Sender: FDA-Public Use
  Company Number: 200418233GDDC

PATIENT
  Age: 75 Year
  Sex: Female

DRUGS (2)
  1. ALLEGRA [Suspect]
     Indication: SEASONAL ALLERGY
     Route: 048
     Dates: start: 20040805, end: 20040815
  2. LOSEC [Concomitant]
     Indication: GASTROINTESTINAL DISORDER
     Route: 048

REACTIONS (1)
  - PALPITATIONS [None]
